FAERS Safety Report 22092452 (Version 1)
Quarter: 2023Q1

REPORT INFORMATION
  Report Type: Other
  Country: GB (occurrence: GB)
  Receive Date: 20230314
  Receipt Date: 20230314
  Transmission Date: 20230417
  Serious: Yes (Hospitalization)
  Sender: FDA-Public Use
  Company Number: GB-MACLEODS PHARMA EU LTD-MAC2023040179

PATIENT

DRUGS (12)
  1. DONEPEZIL [Suspect]
     Active Substance: DONEPEZIL
     Indication: Product used for unknown indication
     Dosage: 5 MILLIGRAM, QD (ONCE IN NIGHT)
     Route: 065
  2. DONEPEZIL [Suspect]
     Active Substance: DONEPEZIL
     Dosage: 10 MILLIGRAM, QD (ONCE IN NIGHT)
     Route: 065
  3. AMLODIPINE [Concomitant]
     Active Substance: AMLODIPINE BESYLATE
     Indication: Product used for unknown indication
     Dosage: 10 MILLIGRAM, QD
     Route: 065
  4. DOCUSATE [Concomitant]
     Active Substance: DOCUSATE
     Indication: Product used for unknown indication
     Dosage: UNK, BID (DOCUSATE50MG/5ML ORAL SOLUTION SUGAR FREE 200 MG BD)
     Route: 048
  5. FOLIC ACID [Concomitant]
     Active Substance: FOLIC ACID
     Indication: Product used for unknown indication
     Dosage: UNK UNK, QD (2.5MG/5ML ORAL SOLUTION SUGAR FREE10ML)
     Route: 048
  6. FERROUS FUMARATE [Concomitant]
     Active Substance: FERROUS FUMARATE
     Indication: Product used for unknown indication
     Dosage: UNK UNK, BID (140MG/5ML ORAL SOLUTION 5ML BD)
     Route: 048
  7. LEVETIRACETAM [Concomitant]
     Active Substance: LEVETIRACETAM
     Indication: Product used for unknown indication
     Dosage: UNK, BID (100MG/ML ORALSOLUTION SUGAR FREE 500MG BD)
     Route: 048
  8. MIRTAZAPINE [Concomitant]
     Active Substance: MIRTAZAPINE
     Indication: Product used for unknown indication
     Dosage: UNK, QD (15MG/ML ORAL SOLUTION SUGAR FREE 30MG ON)
     Route: 048
  9. LORAZEPAM [Concomitant]
     Active Substance: LORAZEPAM
     Indication: Product used for unknown indication
     Dosage: 1 MILLIGRAM, PRN (1MG TABLETS 0.5MG TDS PRN)
     Route: 065
  10. SCOPOLAMINE [Concomitant]
     Active Substance: SCOPOLAMINE
     Indication: Product used for unknown indication
     Dosage: UNK (1MG/72HOURS TRANSDERMAL PATCHES 1 Q72H)
     Route: 065
  11. Laxido Orange oral powderPotassium [Concomitant]
     Indication: Product used for unknown indication
     Dosage: UNK, PRN (POWDER SACHETS SUGAR FREE 1 TDS PRN)
     Route: 048
  12. MELATONIN [Concomitant]
     Active Substance: MELATONIN
     Indication: Product used for unknown indication
     Dosage: UNK, QD ()1MG/1ML ORAL SOLUTION 4ML ON_
     Route: 048

REACTIONS (2)
  - Agitation [Unknown]
  - Seizure [Unknown]
